FAERS Safety Report 19560405 (Version 3)
Quarter: 2023Q1

REPORT INFORMATION
  Report Type: Spontaneous
  Country: US (occurrence: US)
  Receive Date: 20210715
  Receipt Date: 20230328
  Transmission Date: 20230418
  Serious: No
  Sender: FDA-Public Use
  Company Number: US-LUPIN PHARMACEUTICALS INC.-2021-11343

PATIENT

DRUGS (2)
  1. TESTOSTERONE GEL 1.62% [Suspect]
     Active Substance: TESTOSTERONE
     Indication: Androgen deficiency
     Dosage: UNK (IMPACTED PUMP) (CONSUMED 3 OR 4 PUMPS)
     Route: 065
  2. TESTOSTERONE GEL 1.62% [Suspect]
     Active Substance: TESTOSTERONE
     Dosage: UNK, ANOTHER PUMP
     Route: 065

REACTIONS (2)
  - Device delivery system issue [Unknown]
  - No adverse event [Unknown]
